FAERS Safety Report 8390638-1 (Version None)
Quarter: 2012Q2

REPORT INFORMATION
  Report Type: 
  Country: None (occurrence: None)
  Receive Date: 20120529
  Receipt Date: 20120517
  Transmission Date: 20120825
  Serious: Yes (Hospitalization, Other)
  Sender: FDA-Public Use
  Company Number: IT-BRISTOL-MYERS SQUIBB COMPANY-16421935

PATIENT
  Age: 66 Year
  Sex: Male

DRUGS (1)
  1. IPILIMUMAB [Suspect]
     Indication: MALIGNANT MELANOMA
     Dosage: RECEIVED 3 TOTAL DOSES OF IPILIMUMAB
     Route: 042
     Dates: start: 20120103, end: 20120124

REACTIONS (4)
  - NEUTROPENIA [None]
  - ASCITES [None]
  - NEOPLASM MALIGNANT [None]
  - ANAEMIA [None]
